FAERS Safety Report 7141316-8 (Version None)
Quarter: 2010Q4

REPORT INFORMATION
  Report Type: 
  Country: None (occurrence: None)
  Receive Date: 20101122
  Receipt Date: 20101105
  Transmission Date: 20110411
  Serious: Yes (Other)
  Sender: FDA-Public Use
  Company Number: DSA_44323_2010

PATIENT
  Age: 84 Year
  Sex: Female

DRUGS (3)
  1. ENALAPRIL MALEATE [Suspect]
     Indication: PRODUCT USED FOR UNKNOWN INDICATION
     Dosage: (DF ORAL)
     Route: 048
     Dates: start: 20080101
  2. PLETAL [Concomitant]
  3. URSO /00465701/ [Concomitant]

REACTIONS (4)
  - DECREASED ACTIVITY [None]
  - FATIGUE [None]
  - HEAD DISCOMFORT [None]
  - SUICIDAL IDEATION [None]
